FAERS Safety Report 22250894 (Version 5)
Quarter: 2023Q2

REPORT INFORMATION
  Report Type: Report from Study
  Country: GB (occurrence: GB)
  Receive Date: 20230425
  Receipt Date: 20230608
  Transmission Date: 20230722
  Serious: Yes (Other)
  Sender: FDA-Public Use
  Company Number: GB-002147023-NVSC2023GB085936

PATIENT
  Age: 45 Year
  Sex: Male

DRUGS (1)
  1. HYRIMOZ [Suspect]
     Active Substance: ADALIMUMAB-ADAZ
     Indication: Spinal osteoarthritis
     Dosage: 40 MG, Q2W (EOW)
     Route: 058
     Dates: start: 20230314

REACTIONS (6)
  - Spinal osteoarthritis [Unknown]
  - Anxiety [Unknown]
  - Emotional disorder [Unknown]
  - Panic attack [Unknown]
  - Mental disorder [Not Recovered/Not Resolved]
  - Product dose omission issue [Unknown]

NARRATIVE: CASE EVENT DATE: 20230410
